FAERS Safety Report 16045668 (Version 1)
Quarter: 2019Q1

REPORT INFORMATION
  Report Type: Spontaneous
  Country: PL (occurrence: PL)
  Receive Date: 20190307
  Receipt Date: 20190307
  Transmission Date: 20190418
  Serious: Yes (Other)
  Sender: FDA-Public Use
  Company Number: PL-ACCORD-111448

PATIENT
  Age: 66 Year
  Sex: Male
  Weight: 77 kg

DRUGS (2)
  1. ABRAXANE [Suspect]
     Active Substance: PACLITAXEL
     Indication: PANCREATIC CARCINOMA
     Dosage: DOSE: 200,  THERAPY ONGOING
     Route: 042
     Dates: start: 20171107
  2. GEMCITABINE ACCORD [Suspect]
     Active Substance: GEMCITABINE HYDROCHLORIDE
     Indication: PANCREATIC CARCINOMA
     Dosage: DOSE: 1600,  THERAPY ONGOING
     Route: 042
     Dates: start: 20171107

REACTIONS (2)
  - Viral infection [Recovering/Resolving]
  - Asthenia [Recovering/Resolving]

NARRATIVE: CASE EVENT DATE: 20180119
